FAERS Safety Report 16102221 (Version 2)
Quarter: 2019Q2

REPORT INFORMATION
  Report Type: Report from Study
  Country: US (occurrence: US)
  Receive Date: 20190321
  Receipt Date: 20190423
  Transmission Date: 20190711
  Serious: Yes (Death, Hospitalization)
  Sender: FDA-Public Use
  Company Number: US-ACTELION-A-NJ2019-187855

PATIENT
  Age: 81 Year
  Sex: Female

DRUGS (3)
  1. OPSUMIT [Suspect]
     Active Substance: MACITENTAN
     Indication: PULMONARY ARTERIAL HYPERTENSION
     Dosage: 10 MG, QD
     Route: 048
     Dates: start: 20150803, end: 20190405
  2. NAPROXEN. [Concomitant]
     Active Substance: NAPROXEN
  3. OXYGEN. [Concomitant]
     Active Substance: OXYGEN
     Dosage: 2 L

REACTIONS (15)
  - Respiratory failure [Unknown]
  - Dyspnoea [Unknown]
  - Anal incontinence [Recovered/Resolved with Sequelae]
  - Pneumonia [Recovered/Resolved]
  - Pulmonary arterial pressure abnormal [Unknown]
  - Condition aggravated [Recovered/Resolved with Sequelae]
  - Cough [Recovered/Resolved]
  - Back pain [Recovered/Resolved with Sequelae]
  - Urinary incontinence [Recovered/Resolved with Sequelae]
  - Pyrexia [Recovered/Resolved]
  - Muscle strain [Recovered/Resolved with Sequelae]
  - Spinal compression fracture [Recovered/Resolved with Sequelae]
  - Pain [Recovered/Resolved with Sequelae]
  - Cardiac arrest [Fatal]
  - Bradycardia [Fatal]

NARRATIVE: CASE EVENT DATE: 20181228
